FAERS Safety Report 24077149 (Version 1)
Quarter: 2024Q3

REPORT INFORMATION
  Report Type: Report from Study
  Country: ZA (occurrence: ZA)
  Receive Date: 20240711
  Receipt Date: 20240711
  Transmission Date: 20241017
  Serious: Yes (Hospitalization)
  Sender: ABBVIE
  Company Number: ZA-ABBOTT-2024A-1383985

PATIENT
  Age: 65 Year
  Sex: Female

DRUGS (17)
  1. FENOFIBRATE [Suspect]
     Active Substance: FENOFIBRATE
     Indication: Blood cholesterol
     Dosage: 200 MG TAKE ONE CAPSULE ONCE PER DAY
     Route: 048
  2. VENLAFAXINE XR ADCO [Concomitant]
     Indication: Depression
     Dosage: 225 MG TAKE ONE CAPSULE IN THE MORNING
     Route: 048
  3. ACETYLCYSTEINE [Concomitant]
     Active Substance: ACETYLCYSTEINE
     Indication: Product used for unknown indication
     Dosage: 200 MG AS PRESCRIBED
     Route: 048
  4. ACETYLCYSTEINE [Concomitant]
     Active Substance: ACETYLCYSTEINE
     Indication: Product used for unknown indication
     Dosage: 200 MG TAKE ONE TABLET AT NIGHT
     Route: 048
  5. Coryx [Concomitant]
     Indication: Product used for unknown indication
     Dosage: 200 MG TAKE ONE TABLET AT NIGHT
     Route: 048
  6. ALPRAZOLAM [Concomitant]
     Active Substance: ALPRAZOLAM
     Indication: Anxiety
     Dosage: 1 MG TAKE ONE TABLET TWICE A DAY
     Route: 048
  7. ZOLPIDEM TARTRATE [Concomitant]
     Active Substance: ZOLPIDEM TARTRATE
     Indication: Sleep disorder
     Dosage: 12.5 MG TAKE ONE TABLET AT NIGHT
     Route: 048
  8. AMLODIPINE BESYLATE\INDAPAMIDE\PERINDOPRIL ARGININE [Concomitant]
     Active Substance: AMLODIPINE BESYLATE\INDAPAMIDE\PERINDOPRIL ARGININE
     Indication: Hypertension
     Dosage: 10/2.5/10 MG TAKE ONE TABLET ONCE PER DAY
     Route: 048
  9. AMLODIPINE BESYLATE\INDAPAMIDE\PERINDOPRIL ARGININE [Concomitant]
     Active Substance: AMLODIPINE BESYLATE\INDAPAMIDE\PERINDOPRIL ARGININE
     Indication: Hypertension
     Dosage: 5/1.25/5 MG TAKE ONE TABLET ONCE PER DAY
     Route: 048
  10. NORFLEX [Concomitant]
     Active Substance: ORPHENADRINE CITRATE
     Indication: Product used for unknown indication
     Dosage: 100 MG TAKE ONE TABLET AT NIGHT
     Route: 048
  11. FLUPENTIXOL [Concomitant]
     Active Substance: FLUPENTIXOL
     Indication: Mental disorder
     Dosage: 0.5 MG TAKE ONE TABLET TWICE A DAY
     Route: 048
  12. Daglif [Concomitant]
     Indication: Diabetes mellitus
     Dosage: 10 MG TAKE ONE TABLET ONCE PER DAY
     Route: 048
  13. ROSUVASTATIN [Concomitant]
     Active Substance: ROSUVASTATIN
     Indication: Blood cholesterol
     Dosage: 20 MG TAKE ONE TABLET AT NIGHT
     Route: 048
  14. QUETIAPINE [Concomitant]
     Active Substance: QUETIAPINE
     Indication: Mental disorder
     Dosage: 200 MG TAKE ONE TABLET AT NIGHT
     Route: 048
  15. QUETIAPINE [Concomitant]
     Active Substance: QUETIAPINE
     Indication: Mental disorder
     Dosage: 25 MG TAKE ONE TABLET IN THE MORNING
     Route: 048
  16. Novapraz xr [Concomitant]
     Indication: Anxiety
     Dosage: 0.5 MG TAKE ONE IN THE MORNING AND ONE AT 16H00
     Route: 048
  17. METFORMIN HYDROCHLORIDE\VILDAGLIPTIN [Concomitant]
     Active Substance: METFORMIN HYDROCHLORIDE\VILDAGLIPTIN
     Indication: Diabetes mellitus
     Dosage: 50/1000 MG TAKE ONE TABLET TWICE A DAY
     Route: 048

REACTIONS (1)
  - Anxiety [Unknown]
